FAERS Safety Report 8252031-1 (Version None)
Quarter: 2012Q2

REPORT INFORMATION
  Report Type: 
  Country: None (occurrence: None)
  Receive Date: 20120402
  Receipt Date: 20110303
  Transmission Date: 20120825
  Serious: No
  Sender: FDA-Public Use
  Company Number: US-ABBOTT-11P-163-0804245-00

PATIENT
  Age: 57 Year
  Sex: Male
  Weight: 102.27 kg

DRUGS (3)
  1. TESTOSTERONE [Suspect]
     Dosage: DAILY DOSE:  UNKNOWN, GRADUALLY TITRATED UP TO SIX TUBES ONCE DAILY
     Route: 065
  2. TESTOSTERONE [Suspect]
     Indication: BLOOD TESTOSTERONE DECREASED
     Dosage: DAILY DOSE:  UNKNOWN
     Route: 062
     Dates: start: 20100901, end: 20100101
  3. TESTOSTERONE [Suspect]
     Dosage: DAILY DOSE: 100 MILLIGRAM(S), TWO TUBES ONCE DAILY.
     Route: 065
     Dates: start: 20101201

REACTIONS (1)
  - COUGH [None]
